FAERS Safety Report 23611867 (Version 2)
Quarter: 2024Q2

REPORT INFORMATION
  Report Type: Spontaneous
  Country: JP (occurrence: JP)
  Receive Date: 20240308
  Receipt Date: 20240410
  Transmission Date: 20240716
  Serious: Yes (Other)
  Sender: FDA-Public Use
  Company Number: JP-ELI_LILLY_AND_COMPANY-JP202403002562

PATIENT
  Sex: Female

DRUGS (1)
  1. RETEVMO [Suspect]
     Active Substance: SELPERCATINIB
     Indication: Lung neoplasm malignant
     Dosage: 320 MG
     Route: 048
     Dates: start: 202312, end: 202401

REACTIONS (4)
  - Thalamic infarction [Recovered/Resolved]
  - Malaise [Recovering/Resolving]
  - Hypertension [Recovering/Resolving]
  - Decreased appetite [Recovering/Resolving]
